FAERS Safety Report 4581037-9 (Version None)
Quarter: 2005Q1

REPORT INFORMATION
  Report Type: 
  Country: None (occurrence: None)
  Receive Date: 20050214
  Receipt Date: 20040721
  Transmission Date: 20050727
  Serious: No
  Sender: FDA-Public Use
  Company Number: US-GLAXOSMITHKLINE-A0519236A

PATIENT
  Age: 47 Year
  Sex: Female

DRUGS (2)
  1. LAMICTAL [Suspect]
     Dosage: 100MG PER DAY
     Route: 048
  2. RITALIN [Concomitant]

REACTIONS (2)
  - VISION BLURRED [None]
  - WEIGHT INCREASED [None]
